FAERS Safety Report 9563804 (Version 1)
Quarter: 2013Q1

REPORT INFORMATION
  Report Type: Spontaneous
  Country: US (occurrence: None)
  Receive Date: 20121212
  Receipt Date: 20121212
  Transmission Date: 20140127
  Serious: No
  Sender: FDA-Public Use
  Company Number: 1209USA001940

PATIENT
  Age: 46 Year
  Sex: Female

DRUGS (3)
  1. VICTRELIS [Suspect]
     Indication: CHRONIC HEPATITIS C
     Route: 048
     Dates: start: 20120712, end: 20120831
  2. PEGASYS [Suspect]
     Indication: CHRONIC HEPATITIS C
     Dates: start: 20120712
  3. REBETOL [Suspect]
     Indication: CHRONIC HEPATITIS C
     Dates: start: 2012

REACTIONS (7)
  - Purpura [None]
  - Abdominal pain [None]
  - Increased tendency to bruise [None]
  - Post procedural complication [None]
  - Cognitive disorder [None]
  - Arthralgia [None]
  - Dizziness [None]
